FAERS Safety Report 20427959 (Version 1)
Quarter: 2022Q1

REPORT INFORMATION
  Report Type: Spontaneous
  Country: US (occurrence: US)
  Receive Date: 20220204
  Receipt Date: 20220204
  Transmission Date: 20220423
  Serious: Yes (Hospitalization, Other)
  Sender: FDA-Public Use
  Company Number: US-LOTUS-2022-LOTUS-048560

PATIENT
  Age: 79 Year
  Sex: Female

DRUGS (4)
  1. METHOTREXATE [Suspect]
     Active Substance: METHOTREXATE
     Indication: Product used for unknown indication
     Dosage: DOSE: 4.96 G/M2
     Route: 042
  2. LEUCOVORIN [Concomitant]
     Active Substance: LEUCOVORIN
     Indication: Product used for unknown indication
  3. RITUXIMAB [Concomitant]
     Active Substance: RITUXIMAB
     Indication: Product used for unknown indication
  4. SODIUM BICARBONATE [Concomitant]
     Active Substance: SODIUM BICARBONATE
     Indication: Product used for unknown indication

REACTIONS (6)
  - Crystal nephropathy [Unknown]
  - Acute kidney injury [Unknown]
  - Hypoxia [Unknown]
  - Metabolic alkalosis [Unknown]
  - Hypokalaemia [Unknown]
  - Hypocalcaemia [Unknown]
